FAERS Safety Report 16624144 (Version 2)
Quarter: 2019Q3

REPORT INFORMATION
  Report Type: Spontaneous
  Country: US (occurrence: US)
  Receive Date: 20190724
  Receipt Date: 20190904
  Transmission Date: 20191004
  Serious: Yes (Hospitalization, Other)
  Sender: FDA-Public Use
  Company Number: US-GLAXOSMITHKLINE-US2019AMR132541

PATIENT
  Age: 79 Year
  Sex: Female

DRUGS (1)
  1. ANORO ELLIPTA [Suspect]
     Active Substance: UMECLIDINIUM BROMIDE\VILANTEROL TRIFENATATE
     Indication: PRODUCT USED FOR UNKNOWN INDICATION
     Dosage: UNK
     Route: 065
     Dates: start: 2013

REACTIONS (7)
  - Fall [Unknown]
  - Brain injury [Unknown]
  - Cerebral haemorrhage [Unknown]
  - Disability [Unknown]
  - Cerebrovascular accident [Unknown]
  - Hospitalisation [Unknown]
  - Head injury [Unknown]

NARRATIVE: CASE EVENT DATE: 20180914
